FAERS Safety Report 13983108 (Version 1)
Quarter: 2017Q3

REPORT INFORMATION
  Report Type: Spontaneous
  Country: US (occurrence: US)
  Receive Date: 20170918
  Receipt Date: 20170918
  Transmission Date: 20171128
  Serious: No
  Sender: FDA-Public Use
  Company Number: US-ALVOGEN-2017-ALVOGEN-092038

PATIENT
  Age: 71 Year
  Sex: Male
  Weight: 92.99 kg

DRUGS (5)
  1. GAVISCON [Concomitant]
     Active Substance: ALUMINUM HYDROXIDE\MAGNESIUM CARBONATE
     Indication: PRODUCT USED FOR UNKNOWN INDICATION
  2. ZANTAC [Concomitant]
     Active Substance: RANITIDINE HYDROCHLORIDE
     Indication: PRODUCT USED FOR UNKNOWN INDICATION
  3. COREG [Concomitant]
     Active Substance: CARVEDILOL
     Indication: PRODUCT USED FOR UNKNOWN INDICATION
  4. CLINDAMYCIN. [Suspect]
     Active Substance: CLINDAMYCIN
     Indication: WOUND INFECTION
     Dates: start: 20170323
  5. REGRANEX [Suspect]
     Active Substance: BECAPLERMIN
     Indication: WOUND INFECTION
     Dosage: 1X/DAY FOR 12 HOUR ON AND 12 HOURS OFF, TOPICAL
     Route: 061
     Dates: start: 20170324

REACTIONS (1)
  - Liver function test increased [Unknown]
